FAERS Safety Report 14542703 (Version 1)
Quarter: 2018Q1

REPORT INFORMATION
  Report Type: Spontaneous
  Country: US (occurrence: US)
  Receive Date: 20180216
  Receipt Date: 20180216
  Transmission Date: 20180509
  Serious: Yes (Hospitalization)
  Sender: FDA-Public Use
  Company Number: US-OTSUKA-DJ201407883

PATIENT
  Age: 12 Year
  Sex: Female
  Weight: 62.58 kg

DRUGS (3)
  1. ABILIFY [Suspect]
     Active Substance: ARIPIPRAZOLE
     Indication: ANGER
     Dosage: 3 MG, UNK
     Route: 048
     Dates: start: 201401, end: 201405
  2. LEXAPRO [Suspect]
     Active Substance: ESCITALOPRAM OXALATE
     Indication: BIPOLAR DISORDER
     Dosage: UNK
     Route: 048
     Dates: start: 201304, end: 201405
  3. ABILIFY [Suspect]
     Active Substance: ARIPIPRAZOLE
     Indication: BIPOLAR DISORDER

REACTIONS (8)
  - Off label use [Unknown]
  - Unevaluable event [Recovered/Resolved]
  - Weight increased [Not Recovered/Not Resolved]
  - Anger [Unknown]
  - Cyst [Unknown]
  - Mania [Unknown]
  - Drug level above therapeutic [Unknown]
  - Headache [Recovered/Resolved]
